FAERS Safety Report 13689021 (Version 1)
Quarter: 2017Q2

REPORT INFORMATION
  Report Type: Spontaneous
  Country: US (occurrence: US)
  Receive Date: 20170624
  Receipt Date: 20170624
  Transmission Date: 20170830
  Serious: Yes (Life-Threatening, Hospitalization, Disabling)
  Sender: FDA-Public Use
  Company Number: None

PATIENT
  Age: 40 Year
  Sex: Female
  Weight: 51.75 kg

DRUGS (2)
  1. XANAX [Suspect]
     Active Substance: ALPRAZOLAM
     Indication: ANXIETY
     Dosage: ?          OTHER STRENGTH:MG;QUANTITY:1 TABLET(S);?
     Route: 048
     Dates: start: 20130106, end: 20130124
  2. KLONOPIN [Suspect]
     Active Substance: CLONAZEPAM
     Indication: ADVERSE DRUG REACTION
     Dosage: ?          OTHER STRENGTH:MG;QUANTITY:1 TABLET(S);?
     Route: 048
     Dates: start: 20130207, end: 20140113

REACTIONS (19)
  - Withdrawal syndrome [None]
  - Tinnitus [None]
  - Mental impairment [None]
  - Sedation [None]
  - Hallucination [None]
  - Nausea [None]
  - Pain [None]
  - Visual impairment [None]
  - Mental disorder [None]
  - Emotional disorder [None]
  - Paraesthesia [None]
  - Feeling abnormal [None]
  - Impaired quality of life [None]
  - Suicidal ideation [None]
  - Hypoaesthesia [None]
  - Anxiety [None]
  - Intentional product use issue [None]
  - Drug use disorder [None]
  - Dissociation [None]

NARRATIVE: CASE EVENT DATE: 20130106
